FAERS Safety Report 19516116 (Version 3)
Quarter: 2021Q3

REPORT INFORMATION
  Report Type: Spontaneous
  Country: US (occurrence: US)
  Receive Date: 20210709
  Receipt Date: 20210831
  Transmission Date: 20211014
  Serious: Yes (Other)
  Sender: FDA-Public Use
  Company Number: US-ASTELLAS-2021US010568

PATIENT
  Age: 65 Year
  Sex: Female

DRUGS (4)
  1. MYRBETRIQ [Suspect]
     Active Substance: MIRABEGRON
     Route: 048
     Dates: start: 20210322, end: 20210326
  2. MYRBETRIQ [Suspect]
     Active Substance: MIRABEGRON
     Route: 048
     Dates: start: 20210309, end: 20210320
  3. MYRBETRIQ [Suspect]
     Active Substance: MIRABEGRON
     Indication: STRESS URINARY INCONTINENCE
     Route: 048
     Dates: start: 20201013, end: 20201216
  4. OXYBUTYNIN. [Suspect]
     Active Substance: OXYBUTYNIN CHLORIDE
     Indication: PRODUCT USED FOR UNKNOWN INDICATION
     Dosage: 3.9 MG PATCH (/24HRS), ONCE DAILY
     Route: 065
     Dates: start: 20200914

REACTIONS (3)
  - Drug ineffective [Unknown]
  - Urinary tract infection [Unknown]
  - Urinary retention [Recovered/Resolved]

NARRATIVE: CASE EVENT DATE: 20210318
